FAERS Safety Report 10560592 (Version 2)
Quarter: 2014Q4

REPORT INFORMATION
  Report Type: Spontaneous
  Country: US (occurrence: US)
  Receive Date: 20141103
  Receipt Date: 20141211
  Transmission Date: 20150529
  Serious: No
  Sender: FDA-Public Use
  Company Number: US-B.I. PHARMACEUTICALS,INC./RIDGEFIELD-2014-BI-50963BP

PATIENT
  Age: 66 Year
  Sex: Female
  Weight: 88.9 kg

DRUGS (7)
  1. SPIRIVA [Suspect]
     Active Substance: TIOTROPIUM BROMIDE MONOHYDRATE
     Indication: CHRONIC OBSTRUCTIVE PULMONARY DISEASE
     Dosage: 18 MCG
     Route: 055
     Dates: start: 20141016, end: 20141022
  2. LIDODERM [Concomitant]
     Active Substance: LIDOCAINE
     Indication: BACK PAIN
     Dosage: FORMULATION: PATCH
     Route: 065
     Dates: start: 20131122
  3. NARCO [Concomitant]
     Indication: BACK PAIN
     Dosage: STRENGTH: 10 MG-325 MG
     Route: 048
     Dates: start: 1999
  4. GABAPENTIN. [Concomitant]
     Active Substance: GABAPENTIN
     Indication: RESTLESS LEGS SYNDROME
     Dosage: 300 MG
     Route: 048
     Dates: start: 201406
  5. PATADAY [Concomitant]
     Active Substance: OLOPATADINE HYDROCHLORIDE
     Indication: SEASONAL ALLERGY
     Dosage: DOSE PER APPLICATION: 1 DROP EACH EYE; DAILY DOSE: 2 DROPS
     Route: 050
     Dates: start: 201404
  6. NARCO [Concomitant]
     Dosage: STRENGTH: 10/325
     Route: 065
     Dates: start: 20140910
  7. GABAPENTIN. [Concomitant]
     Active Substance: GABAPENTIN
     Dosage: 100 MG
     Route: 065
     Dates: start: 20141006

REACTIONS (9)
  - Stomatitis [Not Recovered/Not Resolved]
  - Rhinorrhoea [Not Recovered/Not Resolved]
  - Flushing [Recovered/Resolved]
  - Heart rate increased [Not Recovered/Not Resolved]
  - Swollen tongue [Recovered/Resolved]
  - Palpitations [Recovered/Resolved]
  - Tremor [Recovered/Resolved]
  - Nervousness [Recovered/Resolved]
  - Tongue disorder [Recovered/Resolved]

NARRATIVE: CASE EVENT DATE: 20141016
